FAERS Safety Report 24582373 (Version 2)
Quarter: 2024Q4

REPORT INFORMATION
  Report Type: Spontaneous
  Country: US (occurrence: US)
  Receive Date: 20241106
  Receipt Date: 20241121
  Transmission Date: 20250114
  Serious: Yes (Other)
  Sender: PFIZER
  Company Number: US-PFIZER INC-PV202400143094

PATIENT
  Age: 82 Year
  Sex: Male
  Weight: 99.773 kg

DRUGS (6)
  1. TAFAMIDIS MEGLUMINE [Suspect]
     Active Substance: TAFAMIDIS MEGLUMINE
     Indication: Cardiac amyloidosis
     Dosage: 80 MG, DAILY/TAKE 80 MG BY MOUTH DAILY
     Route: 048
     Dates: start: 20240805
  2. TAFAMIDIS MEGLUMINE [Suspect]
     Active Substance: TAFAMIDIS MEGLUMINE
     Indication: Amyloidosis
  3. TAFAMIDIS MEGLUMINE [Suspect]
     Active Substance: TAFAMIDIS MEGLUMINE
     Indication: Cardiomyopathy
  4. INSPRA [Concomitant]
     Active Substance: EPLERENONE
     Dosage: TAKE 1 TABLET EVERY DAY
  5. XALATAN [Concomitant]
     Active Substance: LATANOPROST
     Dosage: 0.005 % OPHTHALMIC SOLUTION/INSTILL 1 DROP INTO EACH EYE AT BEDTIME
  6. ELIQUIS [Concomitant]
     Active Substance: APIXABAN
     Dosage: TAKE 1 TABLET TWICE DAILY

REACTIONS (1)
  - Neuropathy peripheral [Not Recovered/Not Resolved]
